FAERS Safety Report 9632862 (Version 1)
Quarter: 2013Q4

REPORT INFORMATION
  Report Type: Report from Study
  Country: BR (occurrence: BR)
  Receive Date: 20131018
  Receipt Date: 20131018
  Transmission Date: 20140711
  Serious: Yes (Other)
  Sender: FDA-Public Use
  Company Number: PHHY2013BR116252

PATIENT
  Age: 59 Year
  Sex: Female
  Weight: 51 kg

DRUGS (5)
  1. ACLASTA [Suspect]
     Indication: OSTEOPOROSIS
     Dosage: 5 MG
     Route: 042
     Dates: start: 201207
  2. DEPURA [Concomitant]
     Dosage: UNK
     Dates: start: 2012
  3. CALCIUM D3 [Concomitant]
     Dosage: UNK
     Dates: start: 2012
  4. DIACEREIN [Concomitant]
     Dosage: UNK
     Dates: start: 201309
  5. CIMICIFUGA RACEMOSA [Concomitant]
     Dosage: UNK
     Dates: start: 2013

REACTIONS (1)
  - Fall [Recovering/Resolving]
